FAERS Safety Report 12433256 (Version 4)
Quarter: 2016Q3

REPORT INFORMATION
  Report Type: Report from Study
  Country: BR (occurrence: BR)
  Receive Date: 20160603
  Receipt Date: 20160815
  Transmission Date: 20161109
  Serious: Yes (Hospitalization, Other)
  Sender: FDA-Public Use
  Company Number: BR-ALEXION PHARMACEUTICALS INC-A201603866

PATIENT
  Age: 35 Year
  Sex: Female

DRUGS (2)
  1. SOLIRIS [Suspect]
     Active Substance: ECULIZUMAB
     Dosage: 1200 MG, Q2W
     Route: 042
  2. SOLIRIS [Suspect]
     Active Substance: ECULIZUMAB
     Indication: HAEMOLYTIC URAEMIC SYNDROME
     Dosage: 900 MG, FOR 4 WEEKS
     Route: 042
     Dates: start: 20150216, end: 20150309

REACTIONS (8)
  - Peripheral swelling [Recovered/Resolved]
  - Infection [Recovered/Resolved]
  - Tremor [Recovered/Resolved]
  - Arteriovenous fistula thrombosis [Recovering/Resolving]
  - Chills [Recovered/Resolved]
  - Arteriovenous fistula occlusion [Recovered/Resolved]
  - Fistula inflammation [Recovering/Resolving]
  - Pain [Recovered/Resolved]

NARRATIVE: CASE EVENT DATE: 20160502
